FAERS Safety Report 8077336-9 (Version None)
Quarter: 2012Q1

REPORT INFORMATION
  Report Type: 
  Country: None (occurrence: None)
  Receive Date: 20120127
  Receipt Date: 20120124
  Transmission Date: 20120608
  Serious: No
  Sender: FDA-Public Use
  Company Number: US-PFIZER INC-2012020630

PATIENT
  Age: 62 Year
  Sex: Male

DRUGS (3)
  1. IBUPROFEN (ADVIL) [Suspect]
     Indication: HIP SURGERY
  2. IBUPROFEN (ADVIL) [Suspect]
     Indication: RHEUMATOID ARTHRITIS
     Dosage: UNK
  3. IBUPROFEN (ADVIL) [Suspect]
     Indication: ARTHRALGIA

REACTIONS (1)
  - DRUG INEFFECTIVE [None]
